FAERS Safety Report 16950727 (Version 2)
Quarter: 2019Q4

REPORT INFORMATION
  Report Type: Spontaneous
  Country: JP (occurrence: JP)
  Receive Date: 20191023
  Receipt Date: 20191105
  Transmission Date: 20200122
  Serious: Yes (Hospitalization, Disabling, Other)
  Sender: FDA-Public Use
  Company Number: JP-ROCHE-2420695

PATIENT
  Age: 66 Year
  Sex: Female
  Weight: 48 kg

DRUGS (4)
  1. HERCEPTIN [Suspect]
     Active Substance: TRASTUZUMAB
     Indication: BREAST CANCER
     Route: 041
     Dates: start: 20190208, end: 20190208
  2. DOCETAXEL. [Suspect]
     Active Substance: DOCETAXEL
     Indication: BREAST CANCER
     Route: 042
     Dates: start: 20190325, end: 20190325
  3. HERCEPTIN [Suspect]
     Active Substance: TRASTUZUMAB
     Route: 041
     Dates: start: 20190325, end: 20190325
  4. PERJETA [Suspect]
     Active Substance: PERTUZUMAB
     Indication: BREAST CANCER
     Route: 042
     Dates: start: 20190325, end: 20190325

REACTIONS (2)
  - Interstitial lung disease [Recovered/Resolved]
  - Breast cancer [Unknown]

NARRATIVE: CASE EVENT DATE: 20190314
